FAERS Safety Report 18212506 (Version 1)
Quarter: 2020Q3

REPORT INFORMATION
  Report Type: Spontaneous
  Country: US (occurrence: US)
  Receive Date: 20200831
  Receipt Date: 20200831
  Transmission Date: 20201103
  Serious: No
  Sender: FDA-Public Use
  Company Number: US-MYLANLABS-2020M1073762

PATIENT

DRUGS (1)
  1. WIXELA INHUB [Suspect]
     Active Substance: FLUTICASONE PROPIONATE\SALMETEROL XINAFOATE
     Indication: ASTHMA
     Dosage: 250/50 MICROGRAM, USING IT 5 + TIMES PER DAY
     Route: 055

REACTIONS (5)
  - Cough [Unknown]
  - Dyspnoea [Unknown]
  - Productive cough [Unknown]
  - Product quality issue [Unknown]
  - Drug ineffective [Unknown]
